FAERS Safety Report 9047063 (Version 1)
Quarter: 2013Q1

REPORT INFORMATION
  Report Type: Spontaneous
  Country: US (occurrence: US)
  Receive Date: 20130204
  Receipt Date: 20130204
  Transmission Date: 20140127
  Serious: Yes (Other)
  Sender: FDA-Public Use
  Company Number: US-JNJFOC-20130114556

PATIENT
  Sex: Female
  Weight: 70.31 kg

DRUGS (4)
  1. REMICADE [Suspect]
     Indication: COLITIS ULCERATIVE
     Route: 042
     Dates: start: 20120404, end: 201210
  2. ZOLOFT [Concomitant]
     Indication: ANXIETY
     Route: 048
     Dates: start: 2010
  3. ZARAH [Concomitant]
     Indication: CONTRACEPTION
     Route: 048
     Dates: start: 2003
  4. ZYRTEC [Concomitant]
     Indication: MULTIPLE ALLERGIES
     Route: 048

REACTIONS (1)
  - Lupus-like syndrome [Recovering/Resolving]
